FAERS Safety Report 4313805-2 (Version None)
Quarter: 2004Q1

REPORT INFORMATION
  Report Type: 
  Country: None (occurrence: None)
  Receive Date: 20040305
  Receipt Date: 20040225
  Transmission Date: 20041129
  Serious: Yes (Hospitalization)
  Sender: FDA-Public Use
  Company Number: 2004198421AT

PATIENT
  Age: 62 Year
  Sex: Female

DRUGS (4)
  1. CAMPTOSAR [Suspect]
     Indication: COLORECTAL CANCER METASTATIC
     Dosage: 180 MG/M2, CYCLE 2, IV; 180 MG/M2, CYCLE, 4, IV
     Route: 042
     Dates: start: 20031216, end: 20031216
  2. CAMPTOSAR [Suspect]
     Indication: COLORECTAL CANCER METASTATIC
     Dosage: 180 MG/M2, CYCLE 2, IV; 180 MG/M2, CYCLE, 4, IV
     Route: 042
     Dates: start: 20040116, end: 20040116
  3. CETUXIMAB () [Suspect]
     Indication: COLORECTAL CANCER METASTATIC
     Dosage: 250 MG/M2, CYCLE 4, IV; 250 MG/M2, CYCLE 7, IV
     Route: 042
     Dates: start: 20031223, end: 20031223
  4. CETUXIMAB () [Suspect]
     Indication: COLORECTAL CANCER METASTATIC
     Dosage: 250 MG/M2, CYCLE 4, IV; 250 MG/M2, CYCLE 7, IV
     Route: 042
     Dates: start: 20040116, end: 20040116

REACTIONS (8)
  - ANAEMIA [None]
  - EXCORIATION [None]
  - FATIGUE [None]
  - HAEMATOCHEZIA [None]
  - LEUKOPENIA [None]
  - PARAESTHESIA [None]
  - PETECHIAE [None]
  - SENSORY DISTURBANCE [None]
